FAERS Safety Report 13667487 (Version 1)
Quarter: 2017Q2

REPORT INFORMATION
  Report Type: Report from Study
  Country: US (occurrence: US)
  Receive Date: 20170620
  Receipt Date: 20170620
  Transmission Date: 20170830
  Serious: Yes (Other)
  Sender: FDA-Public Use
  Company Number: US-ROCHE-1950987

PATIENT
  Age: 67 Year
  Sex: Male
  Weight: 88.53 kg

DRUGS (3)
  1. LUCENTIS [Suspect]
     Active Substance: RANIBIZUMAB
     Indication: RETINAL VEIN OCCLUSION
  2. LUCENTIS [Suspect]
     Active Substance: RANIBIZUMAB
     Indication: MACULAR OEDEMA
  3. LUCENTIS [Suspect]
     Active Substance: RANIBIZUMAB
     Indication: OCULAR VASCULAR DISORDER
     Dosage: ONGOING: YES
     Route: 050
     Dates: start: 2017

REACTIONS (12)
  - Back pain [Recovering/Resolving]
  - Feeling abnormal [Recovering/Resolving]
  - Visual impairment [Unknown]
  - Malaise [Recovering/Resolving]
  - Memory impairment [Unknown]
  - Tick-borne fever [Unknown]
  - Angina pectoris [Unknown]
  - Pain [Recovering/Resolving]
  - Arthritis [Recovering/Resolving]
  - Myalgia [Recovering/Resolving]
  - Blindness [Unknown]
  - Disturbance in attention [Unknown]

NARRATIVE: CASE EVENT DATE: 201701
